FAERS Safety Report 6239001-X (Version None)
Quarter: 2009Q2

REPORT INFORMATION
  Report Type: 
  Country: None (occurrence: None)
  Receive Date: 20090622
  Receipt Date: 20090617
  Transmission Date: 20091009
  Serious: Yes (Other)
  Sender: FDA-Public Use
  Company Number: B0574582A

PATIENT
  Sex: Male

DRUGS (2)
  1. ARIXTRA [Suspect]
     Indication: PHLEBITIS
     Dosage: 7.5MG PER DAY
     Route: 058
     Dates: start: 20090507, end: 20090511
  2. MEDROL [Concomitant]
     Indication: PROSTATE CANCER
     Route: 065

REACTIONS (2)
  - RASH MORBILLIFORM [None]
  - TOXIC SKIN ERUPTION [None]
